FAERS Safety Report 7445100-7 (Version None)
Quarter: 2011Q2

REPORT INFORMATION
  Report Type: 
  Country: None (occurrence: None)
  Receive Date: 20110429
  Receipt Date: 20110411
  Transmission Date: 20111010
  Serious: Yes (Other)
  Sender: FDA-Public Use
  Company Number: US-BAYER-200918533NA

PATIENT
  Sex: Male

DRUGS (19)
  1. LANTUS [Concomitant]
     Dosage: 12 U, QD
     Route: 058
     Dates: start: 20030501
  2. CATAPRES [Concomitant]
     Dosage: 0.1 MG 2 TIMES/WEEK
     Route: 048
  3. TORSEMIDE [Concomitant]
     Dosage: 20 MG, QD
     Route: 048
  4. ZOCOR [Concomitant]
  5. LIPITOR [Concomitant]
     Dosage: 40 MG, QD
     Route: 048
  6. VERAPAMIL [Concomitant]
  7. PROTONIX [Concomitant]
  8. VITAMIN B-12 [Concomitant]
     Dosage: EVERY MONDAY, INJECTION
  9. ZANTAC [Concomitant]
     Dosage: 150 MG, BID
     Route: 048
  10. CALAN [Concomitant]
     Dosage: 240 MG, QD
     Route: 048
  11. ACETYLSALICYLIC ACID SRT [Concomitant]
     Dosage: 325 MG, QD
     Route: 048
  12. CLONIDINE [Concomitant]
  13. MYOVIEW [TETROFOSMIN,ZINC CHLORIDE] [Concomitant]
     Dosage: 10 ML, UNK
     Dates: start: 20020730
  14. TRASYLOL [Suspect]
     Indication: CARDIAC OPERATION
     Route: 042
     Dates: start: 20030527
  15. NORTRIPTYLINE [Concomitant]
     Dosage: 50 MG, QD
     Route: 048
  16. GLUCOPHAGE [Concomitant]
  17. LOPRESSOR [Concomitant]
  18. COLACE [Concomitant]
     Dosage: 100 MG, BID
     Route: 048
  19. LOPID [Concomitant]
     Dosage: 600 MG, BID
     Route: 048

REACTIONS (4)
  - RENAL FAILURE [None]
  - INJURY [None]
  - EMOTIONAL DISTRESS [None]
  - ANXIETY [None]
